FAERS Safety Report 8391381-5 (Version None)
Quarter: 2012Q2

REPORT INFORMATION
  Report Type: 
  Country: None (occurrence: None)
  Receive Date: 20120529
  Receipt Date: 20120517
  Transmission Date: 20120825
  Serious: No
  Sender: FDA-Public Use
  Company Number: US-JNJFOC-20120516673

PATIENT
  Sex: Female
  Weight: 54.43 kg

DRUGS (1)
  1. FENTANYL-100 [Suspect]
     Indication: BACK PAIN
     Dosage: NDC 0781-7243-55
     Route: 062
     Dates: start: 20120301

REACTIONS (1)
  - EXPIRED DRUG ADMINISTERED [None]
